FAERS Safety Report 6133292-1 (Version None)
Quarter: 2009Q1

REPORT INFORMATION
  Report Type: 
  Country: None (occurrence: None)
  Receive Date: 20090326
  Receipt Date: 20090323
  Transmission Date: 20090719
  Serious: Yes (Disabling)
  Sender: FDA-Public Use
  Company Number: IT-BAYER-200917015GPV

PATIENT
  Age: 52 Year
  Sex: Female

DRUGS (5)
  1. ASPIRIN [Suspect]
     Indication: CARDIAC VALVE PROSTHESIS USER
     Dosage: TOTAL DAILY DOSE: 100 MG  UNIT DOSE: 100 MG
     Route: 048
     Dates: start: 20081014, end: 20090309
  2. COUMADIN [Suspect]
     Indication: CARDIAC VALVE PROSTHESIS USER
     Route: 048
     Dates: start: 20070606, end: 20090309
  3. AMIODARONE HCL [Concomitant]
     Indication: DRUG USE FOR UNKNOWN INDICATION
     Route: 048
  4. CARDICOR [Concomitant]
     Indication: DRUG USE FOR UNKNOWN INDICATION
     Route: 048
  5. TRIATEC [Concomitant]
     Indication: DRUG USE FOR UNKNOWN INDICATION
     Route: 048

REACTIONS (2)
  - CEREBRAL HAEMORRHAGE [None]
  - VISUAL ACUITY REDUCED [None]
